FAERS Safety Report 7034786-7 (Version None)
Quarter: 2010Q4

REPORT INFORMATION
  Report Type: 
  Country: None (occurrence: None)
  Receive Date: 20101008
  Receipt Date: 20101001
  Transmission Date: 20110411
  Serious: Yes (Other)
  Sender: FDA-Public Use
  Company Number: US-JNJFOC-20100604183

PATIENT

DRUGS (1)
  1. LEVAQUIN [Suspect]
     Indication: PROSTATITIS
     Route: 048

REACTIONS (2)
  - PERSONALITY DISORDER [None]
  - TENDONITIS [None]
